FAERS Safety Report 5984227-3 (Version None)
Quarter: 2008Q4

REPORT INFORMATION
  Report Type: 
  Country: None (occurrence: None)
  Receive Date: 20081208
  Receipt Date: 20080314
  Transmission Date: 20090506
  Serious: No
  Sender: FDA-Public Use
  Company Number: US-BRISTOL-MYERS SQUIBB COMPANY-14105084

PATIENT
  Age: 74 Year
  Sex: Female
  Weight: 59 kg

DRUGS (7)
  1. QUESTRAN LIGHT [Suspect]
     Indication: BLOOD CHOLESTEROL ABNORMAL
     Dosage: 1 DOSAGE FORM = 1 PACKET.
     Route: 048
     Dates: start: 20060101
  2. QUESTRAN LIGHT [Suspect]
     Indication: DIARRHOEA
     Dosage: 1 DOSAGE FORM = 1 PACKET.
     Route: 048
     Dates: start: 20060101
  3. LIPITOR [Concomitant]
     Indication: BLOOD CHOLESTEROL INCREASED
  4. ACTONEL [Concomitant]
     Indication: OSTEOPOROSIS
  5. MULTI-VITAMINS [Concomitant]
  6. NASONEX [Concomitant]
     Indication: RHINORRHOEA
  7. VITAMIN D [Concomitant]

REACTIONS (2)
  - SKIN DISORDER [None]
  - SKIN PAPILLOMA [None]
